FAERS Safety Report 15052995 (Version 1)
Quarter: 2018Q2

REPORT INFORMATION
  Report Type: Spontaneous
  Country: FR (occurrence: FR)
  Receive Date: 20180622
  Receipt Date: 20180622
  Transmission Date: 20180711
  Serious: Yes (Hospitalization)
  Sender: FDA-Public Use
  Company Number: FR-ELI_LILLY_AND_COMPANY-FR201806006557

PATIENT
  Age: 55 Year
  Sex: Female
  Weight: 61 kg

DRUGS (3)
  1. CODOLIPRANE [Suspect]
     Active Substance: ACETAMINOPHEN\CODEINE PHOSPHATE
     Indication: POISONING DELIBERATE
     Dosage: UNK UNK, UNKNOWN
     Route: 048
     Dates: start: 20180520, end: 20180520
  2. OLANZAPINE. [Suspect]
     Active Substance: OLANZAPINE
     Indication: POISONING DELIBERATE
     Dosage: 56 DF, UNKNOWN
     Route: 048
     Dates: start: 20180520, end: 20180520
  3. DOLIPRANE [Suspect]
     Active Substance: ACETAMINOPHEN
     Indication: POISONING DELIBERATE
     Dosage: UNK UNK, UNKNOWN
     Route: 048
     Dates: start: 20180520, end: 20180520

REACTIONS (6)
  - Disorientation [Recovered/Resolved]
  - Drug abuse [Unknown]
  - Somnolence [Recovered/Resolved]
  - Electroencephalogram abnormal [Recovered/Resolved]
  - Hypokalaemia [Recovered/Resolved]
  - Intentional overdose [Unknown]

NARRATIVE: CASE EVENT DATE: 20180520
